FAERS Safety Report 4686078-9 (Version None)
Quarter: 2005Q2

REPORT INFORMATION
  Report Type: 
  Country: None (occurrence: None)
  Receive Date: 20050609
  Receipt Date: 19900116
  Transmission Date: 20051028
  Serious: Yes (Other)
  Sender: FDA-Public Use
  Company Number: 199020032HAG

PATIENT
  Age: 46 Year
  Sex: Male
  Weight: 71 kg

DRUGS (5)
  1. LASIX [Suspect]
     Route: 048
     Dates: start: 19890101, end: 19890503
  2. TEGRETOL [Suspect]
     Indication: NEUROPATHY PERIPHERAL
     Dates: start: 19890101, end: 19890510
  3. AMOXIL [Suspect]
  4. AMIODARONE HYDROCHLORIDE [Suspect]
     Dates: start: 19890101
  5. SLOW-K [Concomitant]
     Dates: start: 19890101

REACTIONS (12)
  - AGRANULOCYTOSIS [None]
  - BONE MARROW DISORDER [None]
  - CANDIDIASIS [None]
  - COUGH [None]
  - GENITAL ULCERATION [None]
  - HEADACHE [None]
  - LUNG INFILTRATION [None]
  - PNEUMONIA [None]
  - PYREXIA [None]
  - RASH ERYTHEMATOUS [None]
  - RASH MACULO-PAPULAR [None]
  - SKIN EXFOLIATION [None]
